FAERS Safety Report 22343238 (Version 2)
Quarter: 2023Q2

REPORT INFORMATION
  Report Type: Spontaneous
  Country: US (occurrence: US)
  Receive Date: 20230519
  Receipt Date: 20230523
  Transmission Date: 20230721
  Serious: Yes (Other)
  Sender: FDA-Public Use
  Company Number: US-ABBVIE-4760253

PATIENT
  Sex: Male

DRUGS (1)
  1. DEPAKOTE [Suspect]
     Active Substance: DIVALPROEX SODIUM
     Indication: Epilepsy
     Dosage: FORM STRENGTH: 250 MILLIGRAM  ER
     Route: 048

REACTIONS (4)
  - Seizure [Unknown]
  - Product residue present [Unknown]
  - Diarrhoea [Unknown]
  - Malabsorption [Unknown]
